FAERS Safety Report 13412304 (Version 3)
Quarter: 2019Q4

REPORT INFORMATION
  Report Type: Spontaneous
  Country: US (occurrence: US)
  Receive Date: 20170406
  Receipt Date: 20191108
  Transmission Date: 20200122
  Serious: No
  Sender: FDA-Public Use
  Company Number: US-JNJFOC-20161016254

PATIENT
  Sex: Male

DRUGS (10)
  1. SEROQUEL [Suspect]
     Active Substance: QUETIAPINE FUMARATE
     Indication: AUTISM SPECTRUM DISORDER
     Route: 065
     Dates: end: 2018
  2. RISPERIDONE. [Suspect]
     Active Substance: RISPERIDONE
     Indication: PRODUCT USED FOR UNKNOWN INDICATION
     Route: 048
     Dates: start: 20030121, end: 20060621
  3. RISPERIDONE. [Suspect]
     Active Substance: RISPERIDONE
     Indication: AUTISM SPECTRUM DISORDER
     Route: 048
     Dates: start: 20130114, end: 20140428
  4. RISPERIDONE. [Suspect]
     Active Substance: RISPERIDONE
     Indication: AGGRESSION
  5. RISPERIDONE. [Suspect]
     Active Substance: RISPERIDONE
     Indication: AGGRESSION
  6. RISPERIDONE. [Suspect]
     Active Substance: RISPERIDONE
     Route: 048
     Dates: start: 20130114, end: 20140428
  7. RISPERDAL [Suspect]
     Active Substance: RISPERIDONE
     Indication: AGGRESSION
     Dosage: 0.5 ML EVERY NIGHT
     Route: 048
     Dates: start: 20030121, end: 2003
  8. RISPERIDONE. [Suspect]
     Active Substance: RISPERIDONE
     Indication: AUTISM SPECTRUM DISORDER
     Route: 048
     Dates: start: 20130114, end: 20140428
  9. RISPERDAL [Suspect]
     Active Substance: RISPERIDONE
     Indication: AUTISM SPECTRUM DISORDER
     Dosage: IN VARYING DOSES OF 0.25 MG AND 0.5 MG
     Route: 048
     Dates: start: 20030614, end: 20060621
  10. INVEGA [Suspect]
     Active Substance: PALIPERIDONE
     Indication: AUTISM SPECTRUM DISORDER
     Route: 048

REACTIONS (4)
  - Emotional distress [Unknown]
  - Off label use [Unknown]
  - Product use in unapproved indication [Unknown]
  - Gynaecomastia [Unknown]
